FAERS Safety Report 5912926-8 (Version None)
Quarter: 2008Q4

REPORT INFORMATION
  Report Type: 
  Country: None (occurrence: None)
  Receive Date: 20081006
  Receipt Date: 20080930
  Transmission Date: 20090506
  Serious: Yes (Other)
  Sender: FDA-Public Use
  Company Number: CHPA2008US16230

PATIENT
  Age: 74 Year
  Sex: Female

DRUGS (2)
  1. BENEFIBER W/ WHEAT DEXTRIN (NCH) (WHEAT DEXTRIN) POWDER [Suspect]
     Indication: CONSTIPATION
     Dosage: 2 TSP, ONCE/SINGLE, ORAL
     Route: 048
     Dates: start: 20080905, end: 20080905
  2. SYNTHROID [Concomitant]

REACTIONS (7)
  - DYSPEPSIA [None]
  - DYSPNOEA [None]
  - FOOD ALLERGY [None]
  - ORAL DISCOMFORT [None]
  - PHARYNGEAL OEDEMA [None]
  - RASH PRURITIC [None]
  - SWOLLEN TONGUE [None]
